FAERS Safety Report 5170043-1 (Version None)
Quarter: 2006Q4

REPORT INFORMATION
  Report Type: 
  Country: None (occurrence: None)
  Receive Date: 20061212
  Receipt Date: 20061204
  Transmission Date: 20070319
  Serious: Yes (Other)
  Sender: FDA-Public Use
  Company Number: CH-BRISTOL-MYERS SQUIBB COMPANY-13603022

PATIENT

DRUGS (2)
  1. AMIKACIN [Suspect]
     Route: 031
  2. VANCOMYCIN [Concomitant]
     Route: 031

REACTIONS (3)
  - BLINDNESS [None]
  - OPTIC ATROPHY [None]
  - RETINAL DEGENERATION [None]
